FAERS Safety Report 5674193-2 (Version None)
Quarter: 2008Q1

REPORT INFORMATION
  Report Type: 
  Country: None (occurrence: None)
  Receive Date: 20080320
  Receipt Date: 20080313
  Transmission Date: 20080703
  Serious: Yes (Death, Other)
  Sender: FDA-Public Use
  Company Number: PHBS2006PT12318

PATIENT
  Age: 49 Year
  Sex: Male

DRUGS (7)
  1. ZOMETA [Suspect]
     Indication: HODGKIN'S DISEASE
     Route: 042
     Dates: start: 20010101, end: 20060612
  2. POTASSIUM CITRATE [Concomitant]
     Route: 048
     Dates: start: 20030101
  3. BEZAFIBRATE [Concomitant]
     Dosage: UNK, UNK
     Route: 048
  4. PRAVASTATIN SODIUM [Concomitant]
     Dosage: UNK, UNK
     Route: 048
  5. VITAMIN CAP [Concomitant]
     Dosage: 1 DF, QD
     Route: 048
     Dates: start: 19940101
  6. SULFAMETOXAZOL MED TRIMETOPRIM [Concomitant]
     Route: 048
  7. FOLIC ACID [Concomitant]
     Dosage: 10 MG/D
     Route: 048
     Dates: start: 19940101

REACTIONS (9)
  - ANAEMIA [None]
  - INFECTION [None]
  - NON-HODGKIN'S LYMPHOMA [None]
  - OSTEOMYELITIS [None]
  - OSTEONECROSIS [None]
  - POSTRENAL FAILURE [None]
  - RENAL DISORDER [None]
  - RENAL IMPAIRMENT [None]
  - SURGERY [None]
